FAERS Safety Report 15747352 (Version 1)
Quarter: 2018Q4

REPORT INFORMATION
  Report Type: Spontaneous
  Country: US (occurrence: US)
  Receive Date: 20181220
  Receipt Date: 20181220
  Transmission Date: 20190205
  Serious: No
  Sender: FDA-Public Use
  Company Number: US-AVADEL SPECIALTY PHARMACEUTICALS, LLC-2018AVA00356

PATIENT
  Sex: Male
  Weight: 124.72 kg

DRUGS (4)
  1. UNSPECIFIED DIABETES MEDICATION [Concomitant]
  2. NOCTIVA [Suspect]
     Active Substance: DESMOPRESSIN ACETATE
     Indication: NOCTURIA
     Dosage: 0.83 ?G, 1X/DAY ABOUT 30 MINUTES BEFORE BEDTIME
     Route: 045
     Dates: start: 201807, end: 201809
  3. ASPIRIN. [Concomitant]
     Active Substance: ASPIRIN
     Dosage: UNK, 1X/DAY
  4. UNSPECIFIED BLOOD PRESSURE MEDICATION [Concomitant]
     Active Substance: UNSPECIFIED INGREDIENT

REACTIONS (7)
  - Pain [Recovered/Resolved]
  - Headache [Recovered/Resolved]
  - Upper-airway cough syndrome [Unknown]
  - Drug ineffective [Recovered/Resolved]
  - Rhinorrhoea [Unknown]
  - Product preparation issue [Recovered/Resolved]
  - Insomnia [Recovered/Resolved]

NARRATIVE: CASE EVENT DATE: 2018
